FAERS Safety Report 17166699 (Version 1)
Quarter: 2019Q4

REPORT INFORMATION
  Report Type: Spontaneous
  Country: CN (occurrence: CN)
  Receive Date: 20191217
  Receipt Date: 20191217
  Transmission Date: 20200122
  Serious: Yes (Hospitalization)
  Sender: FDA-Public Use
  Company Number: CN-NOVOPROD-701240

PATIENT
  Age: 49 Year
  Sex: Male
  Weight: 70 kg

DRUGS (11)
  1. METHYLPREDNISOLONE SODIUM SUCCINATE. [Concomitant]
     Active Substance: METHYLPREDNISOLONE SODIUM SUCCINATE
     Dosage: 40 MG, QD
     Dates: start: 20191123
  2. KETOTIFEN FUMARATE. [Concomitant]
     Active Substance: KETOTIFEN FUMARATE
     Dosage: 1 MG, QN
     Route: 048
  3. CALCIUM GLUCONATE. [Concomitant]
     Active Substance: CALCIUM GLUCONATE
     Dosage: 2 G, QD
  4. NOVOMIX 30 PENFILL [Suspect]
     Active Substance: INSULIN ASPART
     Indication: TYPE 2 DIABETES MELLITUS
     Dosage: 14 IU, BID
     Route: 058
     Dates: start: 20191121, end: 20191124
  5. SAXAGLIPTIN [Concomitant]
     Active Substance: SAXAGLIPTIN
     Indication: TYPE 2 DIABETES MELLITUS
     Dosage: 5 MG, QD
     Route: 048
     Dates: start: 20191121, end: 20191122
  6. LORATADINE. [Concomitant]
     Active Substance: LORATADINE
     Dosage: 10 MG, QD
     Route: 048
  7. DEXAMETHASONE SODIUM PHOSPHATE. [Concomitant]
     Active Substance: DEXAMETHASONE SODIUM PHOSPHATE
     Dosage: 10 MG, QD
  8. EBASTINE [Concomitant]
     Active Substance: EBASTINE
     Dosage: 10 MG, QN, PO
     Dates: start: 20191123
  9. CEFMETAZOLE [CEFMETAZOLE SODIUM] [Concomitant]
     Indication: CELLULITIS
     Dosage: 1.5 G, BID
     Route: 042
     Dates: start: 20191115, end: 20191124
  10. XUE SAI TONG [Concomitant]
     Indication: TYPE 2 DIABETES MELLITUS
     Dosage: 0.4 G, QD
     Route: 042
     Dates: start: 20191115, end: 20191123
  11. VITAMIN C [Concomitant]
     Active Substance: ASCORBIC ACID
     Dosage: 2 G, QD

REACTIONS (2)
  - Pruritus [Recovering/Resolving]
  - Rash [Recovering/Resolving]

NARRATIVE: CASE EVENT DATE: 20191121
